FAERS Safety Report 6652403-2 (Version None)
Quarter: 2010Q1

REPORT INFORMATION
  Report Type: 
  Country: None (occurrence: None)
  Receive Date: 20100323
  Receipt Date: 20100311
  Transmission Date: 20100710
  Serious: No
  Sender: FDA-Public Use
  Company Number: 2010030031

PATIENT
  Age: 72 Year

DRUGS (1)
  1. ONSOLIS [Suspect]
     Dosage: BU
     Route: 002

REACTIONS (1)
  - NO ADVERSE EVENT [None]
